FAERS Safety Report 5443870-0 (Version None)
Quarter: 2007Q3

REPORT INFORMATION
  Report Type: 
  Country: None (occurrence: None)
  Receive Date: 20070905
  Receipt Date: 20070822
  Transmission Date: 20080115
  Serious: No
  Sender: FDA-Public Use
  Company Number: US-BOEHRINGER INGELHEIM PHARMACEUTICALS, INC.-2007-BP-18147BP

PATIENT
  Age: 41 Year
  Sex: Male
  Weight: 97 kg

DRUGS (14)
  1. FLOMAX [Suspect]
     Indication: PROSTATE EXAMINATION ABNORMAL
     Route: 048
  2. FLOMAX [Suspect]
     Indication: URINE FLOW DECREASED
  3. FLOMAX [Suspect]
     Indication: DYSURIA
  4. LIPITOR [Concomitant]
     Indication: BLOOD CHOLESTEROL
     Route: 048
  5. PROTONIX [Concomitant]
  6. PROTONIX [Concomitant]
  7. TOPROL-XL [Concomitant]
  8. LEXAPRO [Concomitant]
  9. XANAX [Concomitant]
  10. KETOROLAC TROMETHAMINE [Concomitant]
  11. LYRICA [Concomitant]
  12. ULTRAM [Concomitant]
  13. PERCOCET [Concomitant]
  14. ARNITIZA [Concomitant]

REACTIONS (3)
  - DYSURIA [None]
  - URINE FLOW DECREASED [None]
  - URINE OUTPUT DECREASED [None]
